FAERS Safety Report 11443090 (Version 2)
Quarter: 2015Q3

REPORT INFORMATION
  Report Type: Spontaneous
  Country: US (occurrence: US)
  Receive Date: 20150901
  Receipt Date: 20150903
  Transmission Date: 20151125
  Serious: No
  Sender: FDA-Public Use
  Company Number: US-PFIZER INC-2015289980

PATIENT
  Sex: Male

DRUGS (1)
  1. VIAGRA [Suspect]
     Active Substance: SILDENAFIL CITRATE
     Indication: ERECTILE DYSFUNCTION
     Dosage: 25 MG, AS NEEDED
     Route: 048
     Dates: start: 2005, end: 2015

REACTIONS (2)
  - Flushing [Recovered/Resolved]
  - Nasal congestion [Recovered/Resolved]

NARRATIVE: CASE EVENT DATE: 2005
